FAERS Safety Report 20377011 (Version 1)
Quarter: 2022Q1

REPORT INFORMATION
  Report Type: Spontaneous
  Country: AU (occurrence: AU)
  Receive Date: 20220125
  Receipt Date: 20220125
  Transmission Date: 20220424
  Serious: Yes (Other)
  Sender: FDA-Public Use
  Company Number: AU-ALLERGAN-2140057US

PATIENT
  Sex: Male

DRUGS (3)
  1. BRIMONIDINE [Suspect]
     Active Substance: BRIMONIDINE TARTRATE
     Indication: Glaucoma
     Dosage: UNK
     Route: 047
  2. TIMOLOL [Concomitant]
     Active Substance: TIMOLOL
  3. LATANOPROST [Concomitant]
     Active Substance: LATANOPROST

REACTIONS (1)
  - Iridocyclitis [Recovered/Resolved]
